FAERS Safety Report 8580936 (Version 5)
Quarter: 2013Q1

REPORT INFORMATION
  Report Type: Report from Study
  Country: AU (occurrence: AU)
  Receive Date: 20120525
  Receipt Date: 20130124
  Transmission Date: 20140127
  Serious: Yes (Other)
  Sender: FDA-Public Use
  Company Number: PHHO2012AU007842

PATIENT
  Age: 46 Year
  Sex: Female
  Weight: 79.5 kg

DRUGS (9)
  1. FTY [Suspect]
     Indication: MULTIPLE SCLEROSIS RELAPSE
     Dosage: 0.5 MG, QD
     Route: 048
     Dates: start: 20110323
  2. LEVONORGESTREL [Concomitant]
     Dosage: 50 UG, UNK
     Route: 065
  3. LEVONORGESTREL [Concomitant]
     Dosage: 75 UG, UNK
     Route: 065
  4. LEVONORGESTREL [Concomitant]
     Dosage: 125 UG, UNK
     Route: 065
  5. ETHINYLOESTRADIOL [Concomitant]
     Dosage: 30 UG, UNK
     Route: 065
  6. ETHINYLOESTRADIOL [Concomitant]
     Dosage: 40 UG, UNK
     Route: 065
  7. TRIPHASIL [Concomitant]
     Indication: CONTRACEPTION
     Dosage: 1 DF, QD
     Dates: start: 199908, end: 20120514
  8. TRITACE [Concomitant]
     Indication: HYPERTENSION
     Dosage: 10 MG, QD
     Route: 065
     Dates: start: 20110627, end: 20120514
  9. NORVASC [Concomitant]
     Indication: HYPERTENSION
     Dosage: 10 MG, QD
     Route: 065
     Dates: start: 20110829, end: 20120514

REACTIONS (1)
  - Thyroid neoplasm [Not Recovered/Not Resolved]
